FAERS Safety Report 25360600 (Version 1)
Quarter: 2025Q2

REPORT INFORMATION
  Report Type: Spontaneous
  Country: US (occurrence: US)
  Receive Date: 20250527
  Receipt Date: 20250527
  Transmission Date: 20250716
  Serious: No
  Sender: APOTEX
  Company Number: US-APOTEX-2025AP007277

PATIENT
  Age: 14 Year
  Sex: Male
  Weight: 71.4 kg

DRUGS (2)
  1. LEVOCETIRIZINE [Interacting]
     Active Substance: LEVOCETIRIZINE
     Indication: Product used for unknown indication
     Dosage: 5 MILLIGRAM, QD
     Route: 065
  2. ABROCITINIB [Interacting]
     Active Substance: ABROCITINIB
     Indication: Product used for unknown indication
     Route: 065

REACTIONS (1)
  - Drug interaction [Unknown]
